FAERS Safety Report 5508226-0 (Version None)
Quarter: 2007Q4

REPORT INFORMATION
  Report Type: 
  Country: None (occurrence: None)
  Receive Date: 20071030
  Receipt Date: 20070911
  Transmission Date: 20080405
  Serious: No
  Sender: FDA-Public Use
  Company Number: 267472

PATIENT
  Age: 52 Year
  Sex: Female

DRUGS (2)
  1. LEVEMIR [Suspect]
     Indication: INSULIN-REQUIRING TYPE II DIABETES MELLITUS
     Dosage: 20 U, SUBCUTANEOUS ; 30, SUBCUTANEOUS ; 40 U, SUBCUTANEOUS
     Route: 058
     Dates: start: 20070814
  2. LEVEMIR [Suspect]
     Indication: INSULIN-REQUIRING TYPE II DIABETES MELLITUS
     Dosage: 20 U, SUBCUTANEOUS ; 30, SUBCUTANEOUS ; 40 U, SUBCUTANEOUS
     Route: 058
     Dates: start: 20070830

REACTIONS (3)
  - BLOOD GLUCOSE INCREASED [None]
  - INJECTION SITE PRURITUS [None]
  - INJECTION SITE RASH [None]
